FAERS Safety Report 9539359 (Version 1)
Quarter: 2013Q3

REPORT INFORMATION
  Report Type: Spontaneous
  Country: IT (occurrence: IT)
  Receive Date: 20130920
  Receipt Date: 20130920
  Transmission Date: 20140515
  Serious: Yes (Hospitalization)
  Sender: FDA-Public Use
  Company Number: IT-SANOFI-AVENTIS-2013SA091104

PATIENT
  Age: 80 Year
  Sex: Male

DRUGS (8)
  1. RIFAMPICIN [Suspect]
     Indication: STAPHYLOCOCCAL INFECTION
     Route: 065
     Dates: start: 20130819, end: 20130827
  2. LASIX [Concomitant]
     Dosage: STRENGTH: 25 MG
  3. ZAROXOLYN [Concomitant]
     Dosage: STRENGTH: 5 MG
  4. KANRENOL [Concomitant]
     Dosage: STRENGTH: 100 MG
  5. COUMADIN [Concomitant]
     Dosage: STRENGTH: 5 MG
  6. ZYLORIC [Concomitant]
     Dosage: STRENGTH: 100 MG
  7. CARVEDILOL [Concomitant]
  8. DEPALGOS [Concomitant]
     Dosage: STRENGTH: 5 MG+325 MG

REACTIONS (3)
  - Asthenia [Unknown]
  - Malaise [Unknown]
  - Hyperbilirubinaemia [Unknown]
